FAERS Safety Report 6583676-2 (Version None)
Quarter: 2010Q1

REPORT INFORMATION
  Report Type: 
  Country: None (occurrence: None)
  Receive Date: 20100216
  Receipt Date: 20100208
  Transmission Date: 20100710
  Serious: Yes (Hospitalization)
  Sender: FDA-Public Use
  Company Number: JP-B.I. PHARMACEUTICALS,INC./RIDGEFIELD-2010-BP-00448NB

PATIENT
  Sex: Female

DRUGS (7)
  1. PRAMIPEXOLE DIHYDROCHLORIDE [Suspect]
     Indication: PARKINSON'S DISEASE
     Dosage: 1 MG
     Route: 048
     Dates: end: 20100108
  2. CARBIDOPA AND LEVODOPA [Suspect]
     Indication: PARKINSON'S DISEASE
     Dosage: 100 MG
     Route: 048
     Dates: end: 20100125
  3. MAGNESIUM OXIDE [Suspect]
     Indication: CONSTIPATION
     Dosage: 1 G
     Route: 048
     Dates: end: 20100125
  4. HICEE [Concomitant]
     Indication: PARKINSON'S DISEASE
     Dosage: 6 G
     Route: 048
  5. DOPS [Concomitant]
     Indication: PARKINSON'S DISEASE
     Dosage: 100 MG
     Route: 048
     Dates: end: 20100125
  6. PERMAX [Concomitant]
     Indication: PARKINSON'S DISEASE
     Dosage: 250 MCG
     Route: 048
     Dates: end: 20100125
  7. FP-OD [Concomitant]
     Indication: PARKINSON'S DISEASE
     Dosage: 5 MG
     Route: 048
     Dates: end: 20100108

REACTIONS (4)
  - DYSPHAGIA [None]
  - NUTRITIONAL CONDITION ABNORMAL [None]
  - ORAL MUCOSAL DISCOLOURATION [None]
  - PNEUMONIA ASPIRATION [None]
